FAERS Safety Report 16967542 (Version 3)
Quarter: 2019Q4

REPORT INFORMATION
  Report Type: Report from Study
  Country: PK (occurrence: PK)
  Receive Date: 20191028
  Receipt Date: 20191218
  Transmission Date: 20200122
  Serious: Yes (Death)
  Sender: FDA-Public Use
  Company Number: NVSC2019PK018044

PATIENT
  Sex: Female
  Weight: 58 kg

DRUGS (1)
  1. TASIGNA [Suspect]
     Active Substance: NILOTINIB
     Indication: CHRONIC MYELOID LEUKAEMIA
     Dosage: 2 DF (200 MG), BID
     Route: 048
     Dates: start: 20140924

REACTIONS (4)
  - Myocardial infarction [Fatal]
  - Discomfort [Fatal]
  - Fatigue [Unknown]
  - Decreased appetite [Unknown]
